FAERS Safety Report 4329463-7 (Version None)
Quarter: 2004Q1

REPORT INFORMATION
  Report Type: 
  Country: None (occurrence: None)
  Receive Date: 20040330
  Receipt Date: 20040330
  Transmission Date: 20041129
  Serious: Yes (Death)
  Sender: FDA-Public Use
  Company Number: None

PATIENT
  Age: 48 Year
  Sex: Female

DRUGS (9)
  1. ETHYOL [Suspect]
     Indication: BONE NEOPLASM MALIGNANT
     Dosage: 500 MG SQ
     Dates: start: 20040304, end: 20040319
  2. ETHYOL [Suspect]
     Indication: PROPHYLAXIS
     Dosage: 500 MG SQ
     Dates: start: 20040304, end: 20040319
  3. OXYCONTIN [Concomitant]
  4. ZOFRAN [Concomitant]
  5. LOMOTIL [Concomitant]
  6. CISPLATIN [Concomitant]
  7. RT [Concomitant]
  8. HYDROCHLOROTHIAZIDE [Concomitant]
  9. LORCET-HD [Concomitant]

REACTIONS (1)
  - CARDIAC ARREST [None]
